FAERS Safety Report 18603833 (Version 1)
Quarter: 2020Q4

REPORT INFORMATION
  Report Type: Spontaneous
  Country: TR (occurrence: TR)
  Receive Date: 20201211
  Receipt Date: 20201211
  Transmission Date: 20210114
  Serious: Yes (Hospitalization)
  Sender: FDA-Public Use
  Company Number: TR-LUPIN PHARMACEUTICALS INC.-2020-10176

PATIENT
  Age: 13 Month
  Sex: Male
  Weight: 10.5 kg

DRUGS (2)
  1. CALCIUM [Suspect]
     Active Substance: CALCIUM
     Indication: NEPHROCALCINOSIS
     Dosage: 480 MILLIGRAM, QD
     Route: 065
  2. VITAMIN D [COLECALCIFEROL] [Suspect]
     Active Substance: CHOLECALCIFEROL
     Indication: NEPHROCALCINOSIS
     Dosage: 400 INTERNATIONAL UNIT
     Route: 048

REACTIONS (1)
  - Hypercalcaemia [Recovered/Resolved]
